FAERS Safety Report 4704355-X (Version None)
Quarter: 2005Q2

REPORT INFORMATION
  Report Type: 
  Country: None (occurrence: None)
  Receive Date: 20050630
  Receipt Date: 20050622
  Transmission Date: 20051028
  Serious: Yes (Other)
  Sender: FDA-Public Use
  Company Number: US-JNJFOC-20050601449

PATIENT
  Age: 50 Year
  Sex: Female

DRUGS (5)
  1. LEVAQUIN [Suspect]
     Indication: BRONCHITIS
     Route: 049
  2. ALBUTEROL [Concomitant]
     Indication: BRONCHITIS
     Route: 045
  3. INTAB DM [Concomitant]
  4. INTAB DM [Concomitant]
  5. INTAB DM [Concomitant]

REACTIONS (7)
  - ALOPECIA [None]
  - ARTHRALGIA [None]
  - BACK INJURY [None]
  - BACK PAIN [None]
  - HYPOAESTHESIA [None]
  - MIGRAINE [None]
  - TENDONITIS [None]
